FAERS Safety Report 12893711 (Version 1)
Quarter: 2016Q4

REPORT INFORMATION
  Report Type: Spontaneous
  Country: GB (occurrence: GB)
  Receive Date: 20161028
  Receipt Date: 20161028
  Transmission Date: 20170207
  Serious: Yes (Other)
  Sender: FDA-Public Use
  Company Number: GB-PFIZER INC-2016495949

PATIENT
  Sex: Male

DRUGS (1)
  1. SERTRALINE HCL [Suspect]
     Active Substance: SERTRALINE HYDROCHLORIDE
     Indication: ANXIETY
     Dosage: 50 MG, DAILY
     Route: 065

REACTIONS (6)
  - Abasia [Unknown]
  - Fatigue [Unknown]
  - Blood sodium decreased [Unknown]
  - Judgement impaired [Not Recovered/Not Resolved]
  - Polyuria [Unknown]
  - Urinary incontinence [Unknown]
